FAERS Safety Report 21408845 (Version 3)
Quarter: 2023Q1

REPORT INFORMATION
  Report Type: Spontaneous
  Country: JP (occurrence: JP)
  Receive Date: 20221004
  Receipt Date: 20230317
  Transmission Date: 20230418
  Serious: Yes (Death, Disabling, Other)
  Sender: FDA-Public Use
  Company Number: JP-ONO-2022JP023742

PATIENT
  Age: 58 Year
  Sex: Male
  Weight: 58.7 kg

DRUGS (7)
  1. OPDIVO [Suspect]
     Active Substance: NIVOLUMAB
     Indication: Gastric cancer
     Route: 041
     Dates: start: 20220805, end: 20220805
  2. OXALIPLATIN [Suspect]
     Active Substance: OXALIPLATIN
     Indication: Gastric cancer
     Route: 041
     Dates: start: 20220805, end: 20220819
  3. FLUOROURACIL [Suspect]
     Active Substance: FLUOROURACIL
     Indication: Gastric cancer
     Route: 041
     Dates: start: 20220805, end: 20220819
  4. LEVOLEUCOVORIN CALCIUM [Suspect]
     Active Substance: LEVOLEUCOVORIN CALCIUM
     Indication: Gastric cancer
     Route: 041
     Dates: start: 20220805, end: 20220819
  5. FLUOROURACIL [Suspect]
     Active Substance: FLUOROURACIL
     Indication: Gastric cancer
     Route: 041
     Dates: start: 20220805, end: 20220806
  6. FLUOROURACIL [Suspect]
     Active Substance: FLUOROURACIL
     Route: 041
     Dates: start: 20220819, end: 20220820
  7. FLUOROURACIL [Suspect]
     Active Substance: FLUOROURACIL
     Route: 041

REACTIONS (12)
  - Diarrhoea [Unknown]
  - Malignant neoplasm progression [Fatal]
  - Hypovolaemic shock [Unknown]
  - Portal venous gas [Unknown]
  - Pneumatosis intestinalis [Unknown]
  - Pneumoperitoneum [Unknown]
  - Gastrointestinal necrosis [Unknown]
  - Infarction [Unknown]
  - Immune-mediated enterocolitis [Unknown]
  - Angiopathy [Unknown]
  - Lung consolidation [Unknown]
  - Cardiac hypertrophy [Unknown]

NARRATIVE: CASE EVENT DATE: 20220809
